FAERS Safety Report 4310209-3 (Version None)
Quarter: 2004Q1

REPORT INFORMATION
  Report Type: 
  Country: None (occurrence: None)
  Receive Date: 20040302
  Receipt Date: 20040302
  Transmission Date: 20041129
  Serious: Yes (Disabling)
  Sender: FDA-Public Use
  Company Number: None

PATIENT
  Sex: Female
  Weight: 90.7194 kg

DRUGS (1)
  1. NARDIL [Suspect]
     Dosage: 120 MG 3 TIMES/D ORAL
     Route: 048
     Dates: start: 19850816, end: 20040301

REACTIONS (4)
  - DEPRESSION [None]
  - DRUG EFFECT DECREASED [None]
  - DRUG LEVEL BELOW THERAPEUTIC [None]
  - PHARMACEUTICAL PRODUCT COMPLAINT [None]
